FAERS Safety Report 26135913 (Version 1)
Quarter: 2025Q4

REPORT INFORMATION
  Report Type: Spontaneous
  Country: US (occurrence: None)
  Receive Date: 20251209
  Receipt Date: 20251209
  Transmission Date: 20260117
  Serious: Yes (Hospitalization)
  Sender: FDA-CTU
  Company Number: None

PATIENT
  Age: 70 Year
  Sex: Male

DRUGS (1)
  1. DAPTOMYCIN [Suspect]
     Active Substance: DAPTOMYCIN
     Indication: Product used for unknown indication
     Dosage: FREQUENCY : DAILY;
     Route: 042
     Dates: start: 20250321, end: 20250421

REACTIONS (6)
  - Eosinophilic pneumonia [None]
  - Device malfunction [None]
  - Infusion site rash [None]
  - Dysphagia [None]
  - Back pain [None]
  - Pulmonary fibrosis [None]

NARRATIVE: CASE EVENT DATE: 20250421
